FAERS Safety Report 24267775 (Version 1)
Quarter: 2024Q3

REPORT INFORMATION
  Report Type: Spontaneous
  Country: US (occurrence: US)
  Receive Date: 20240830
  Receipt Date: 20240830
  Transmission Date: 20241016
  Serious: Yes (Other)
  Sender: JIANGSU HENGRUI MEDICINE
  Company Number: US-Jiangsu Hengrui Medicine Co., Ltd.-2161023

PATIENT
  Age: 24 Month
  Sex: Male

DRUGS (5)
  1. CYCLOPHOSPHAMIDE [Suspect]
     Active Substance: CYCLOPHOSPHAMIDE
     Indication: Retinoblastoma
  2. VINCRISTINE [Suspect]
     Active Substance: VINCRISTINE
  3. MELPHALAN [Suspect]
     Active Substance: MELPHALAN
  4. TOPOTECAN [Suspect]
     Active Substance: TOPOTECAN HYDROCHLORIDE
  5. CISPLATIN [Suspect]
     Active Substance: CISPLATIN

REACTIONS (2)
  - Cytomegalovirus chorioretinitis [Recovered/Resolved]
  - Product use in unapproved indication [Recovered/Resolved]
